FAERS Safety Report 10158206 (Version 2)
Quarter: 2014Q3

REPORT INFORMATION
  Report Type: Spontaneous
  Country: IT (occurrence: IT)
  Receive Date: 20140507
  Receipt Date: 20140721
  Transmission Date: 20150326
  Serious: Yes (Hospitalization)
  Sender: FDA-Public Use
  Company Number: IT-PFIZER INC-2014124655

PATIENT
  Age: 26 Year
  Sex: Female

DRUGS (2)
  1. XANAX [Suspect]
     Active Substance: ALPRAZOLAM
     Indication: ANXIETY
     Dosage: 20 ML, SINGLE
     Route: 048
     Dates: start: 20140413, end: 20140413
  2. DULCOLAX [Concomitant]
     Active Substance: BISACODYL OR DOCUSATE SODIUM
     Dosage: UNK

REACTIONS (2)
  - Drug abuse [Recovered/Resolved]
  - Sopor [Recovered/Resolved]

NARRATIVE: CASE EVENT DATE: 20140413
